FAERS Safety Report 11282984 (Version 1)
Quarter: 2015Q3

REPORT INFORMATION
  Report Type: Spontaneous
  Country: US (occurrence: US)
  Receive Date: 20150720
  Receipt Date: 20150720
  Transmission Date: 20151125
  Serious: Yes (Hospitalization)
  Sender: FDA-Public Use
  Company Number: US-JNJFOC-20150708792

PATIENT
  Age: 50 Year
  Sex: Male
  Weight: 71 kg

DRUGS (3)
  1. BENZTROPINE [Concomitant]
     Active Substance: BENZTROPINE
     Route: 065
  2. RISPERDAL [Concomitant]
     Active Substance: RISPERIDONE
     Route: 048
  3. RISPERDAL CONSTA [Suspect]
     Active Substance: RISPERIDONE
     Indication: SCHIZOPHRENIA
     Route: 030

REACTIONS (3)
  - Foreign body [Unknown]
  - Abnormal behaviour [Unknown]
  - Treatment noncompliance [Recovered/Resolved]

NARRATIVE: CASE EVENT DATE: 20150711
